FAERS Safety Report 25732080 (Version 1)
Quarter: 2025Q3

REPORT INFORMATION
  Report Type: Spontaneous
  Country: CA (occurrence: CA)
  Receive Date: 20250827
  Receipt Date: 20250827
  Transmission Date: 20251020
  Serious: Yes (Hospitalization)
  Sender: MYLAN
  Company Number: CA-MYLANLABS-2025M1017634

PATIENT
  Sex: Male

DRUGS (17)
  1. REVATIO [Suspect]
     Active Substance: SILDENAFIL CITRATE
     Indication: Pulmonary arterial hypertension
     Dosage: 20 MILLIGRAM, QD (ONCE DAILY FOR 2 WEEKS)
  2. REVATIO [Suspect]
     Active Substance: SILDENAFIL CITRATE
     Dosage: 20 MILLIGRAM, BID (TWICE DAILY FOR 2 WEEKS)
  3. REVATIO [Suspect]
     Active Substance: SILDENAFIL CITRATE
     Dosage: 20 MILLIGRAM, TID (THRICE DAILY)
     Dates: start: 20250226
  4. OFEV [Concomitant]
     Active Substance: NINTEDANIB
  5. PERINDOPRIL [Concomitant]
     Active Substance: PERINDOPRIL
  6. BISOPROLOL [Concomitant]
     Active Substance: BISOPROLOL
  7. EZETIMIBE [Concomitant]
     Active Substance: EZETIMIBE
  8. ASPIRIN [Concomitant]
     Active Substance: ASPIRIN
  9. RABEPRAZOLE [Concomitant]
     Active Substance: RABEPRAZOLE
  10. VASCEPA [Concomitant]
     Active Substance: ICOSAPENT ETHYL
  11. REPATHA [Concomitant]
     Active Substance: EVOLOCUMAB
  12. ALLOPURINOL [Concomitant]
     Active Substance: ALLOPURINOL
  13. LASIX [Concomitant]
     Active Substance: FUROSEMIDE
  14. RYALTRIS [Concomitant]
     Active Substance: MOMETASONE FUROATE MONOHYDRATE\OLOPATADINE HYDROCHLORIDE
  15. B12 [Concomitant]
  16. VITAMIN D NOS [Concomitant]
     Active Substance: CHOLECALCIFEROL\ERGOCALCIFEROL
  17. OXYGEN [Concomitant]
     Active Substance: OXYGEN

REACTIONS (2)
  - Hospitalisation [Unknown]
  - Off label use [Unknown]

NARRATIVE: CASE EVENT DATE: 20250101
